FAERS Safety Report 17912507 (Version 4)
Quarter: 2020Q3

REPORT INFORMATION
  Report Type: Spontaneous
  Country: ES (occurrence: ES)
  Receive Date: 20200618
  Receipt Date: 20200717
  Transmission Date: 20201103
  Serious: Yes (Hospitalization, Other)
  Sender: FDA-Public Use
  Company Number: ES-PFIZER INC-2020235628

PATIENT
  Age: 6 Decade
  Sex: Female

DRUGS (2)
  1. PALBOCICLIB [Suspect]
     Active Substance: PALBOCICLIB
     Dosage: UNK
     Route: 048
  2. FULVESTRANT. [Suspect]
     Active Substance: FULVESTRANT
     Dosage: UNK
     Route: 030

REACTIONS (6)
  - Pyrexia [Unknown]
  - Nausea [Unknown]
  - Presyncope [Unknown]
  - Respiratory tract infection [Unknown]
  - Disorientation [Unknown]
  - Toxicity to various agents [Unknown]
